FAERS Safety Report 10303562 (Version 1)
Quarter: 2014Q3

REPORT INFORMATION
  Report Type: Spontaneous
  Country: US (occurrence: US)
  Receive Date: 20140714
  Receipt Date: 20140714
  Transmission Date: 20150326
  Serious: Yes (Hospitalization)
  Sender: FDA-Public Use
  Company Number: US-ABBVIE-14P-163-1259685-00

PATIENT
  Age: 35 Year
  Sex: Female

DRUGS (4)
  1. VALPROIC ACID. [Suspect]
     Active Substance: VALPROIC ACID
     Indication: BIPOLAR DISORDER
  2. BENZOTROPINE [Concomitant]
     Active Substance: BENZTROPINE
     Indication: PRODUCT USED FOR UNKNOWN INDICATION
  3. HYDROCHLOROTHIAZIDE. [Suspect]
     Active Substance: HYDROCHLOROTHIAZIDE
     Indication: PRODUCT USED FOR UNKNOWN INDICATION
  4. OLANZAPINE. [Suspect]
     Active Substance: OLANZAPINE
     Indication: BIPOLAR DISORDER

REACTIONS (25)
  - Coma [Unknown]
  - Vision blurred [Unknown]
  - Acute prerenal failure [Recovered/Resolved]
  - Sinus tachycardia [Unknown]
  - White blood cell count increased [Unknown]
  - Diabetic encephalopathy [Recovered/Resolved]
  - Vomiting [Unknown]
  - Oxygen saturation decreased [Unknown]
  - pH urine decreased [Unknown]
  - Blood creatinine increased [Unknown]
  - Headache [Unknown]
  - Hyperhidrosis [Unknown]
  - Polyuria [Unknown]
  - Blood urea increased [Unknown]
  - Pyrexia [Unknown]
  - Nausea [Unknown]
  - Blood glucose increased [Unknown]
  - Blood osmolarity increased [Unknown]
  - Polydipsia [Unknown]
  - Chills [Unknown]
  - Miosis [Unknown]
  - Electrocardiogram T wave peaked [Unknown]
  - Blood sodium increased [Unknown]
  - Sepsis [Recovered/Resolved]
  - Glucose urine present [Unknown]
